FAERS Safety Report 11785677 (Version 4)
Quarter: 2016Q1

REPORT INFORMATION
  Report Type: Other
  Country: GB (occurrence: GB)
  Receive Date: 20151130
  Receipt Date: 20160316
  Transmission Date: 20160525
  Serious: Yes (Death, Other)
  Sender: FDA-Public Use
  Company Number: GB-MYLANLABS-2015M1040503

PATIENT

DRUGS (9)
  1. ZOPICLONE [Suspect]
     Active Substance: ZOPICLONE
     Dosage: 3.75 MG, QD (AT NIGHT.)
     Route: 048
     Dates: end: 20150609
  2. MIRTAZAPINE. [Suspect]
     Active Substance: MIRTAZAPINE
     Dosage: 45 MG, QD (AT NIGHT)
     Route: 048
     Dates: end: 20150609
  3. RISPERIDONE. [Suspect]
     Active Substance: RISPERIDONE
     Dosage: 2 MG, BID
     Route: 048
     Dates: end: 20150609
  4. VENLAFAXINE [Suspect]
     Active Substance: VENLAFAXINE HYDROCHLORIDE
     Dosage: 225 MG, QD
     Route: 048
     Dates: end: 20150609
  5. NUROFEN PLUS [Suspect]
     Active Substance: CODEINE PHOSPHATE\IBUPROFEN
     Dosage: UNK
     Route: 048
     Dates: end: 20150609
  6. QUETIAPINE [Suspect]
     Active Substance: QUETIAPINE
     Dosage: 150 MG, TID
     Route: 048
     Dates: end: 20150609
  7. GLIMEPIRIDE. [Suspect]
     Active Substance: GLIMEPIRIDE
     Dosage: 2 MG, QD
     Route: 048
     Dates: end: 20150609
  8. METFORMIN [Suspect]
     Active Substance: METFORMIN HYDROCHLORIDE
     Dosage: 2 G, QD (WITH EVENING MEAL)
     Route: 048
     Dates: end: 20150609
  9. SITAGLIPTIN [Suspect]
     Active Substance: SITAGLIPTIN
     Dosage: 100 MG, QD
     Route: 048
     Dates: end: 20150606

REACTIONS (2)
  - Metabolic acidosis [Not Recovered/Not Resolved]
  - Intentional overdose [Fatal]
